FAERS Safety Report 11071268 (Version 2)
Quarter: 2015Q2

REPORT INFORMATION
  Report Type: Spontaneous
  Country: JP (occurrence: JP)
  Receive Date: 20150428
  Receipt Date: 20150512
  Transmission Date: 20150821
  Serious: Yes (Hospitalization)
  Sender: FDA-Public Use
  Company Number: JP-TEVA-558416ISR

PATIENT
  Age: 70 Year
  Sex: Female

DRUGS (3)
  1. SELEGILINE [Concomitant]
     Active Substance: SELEGILINE
     Indication: PARKINSON^S DISEASE
     Dosage: 5 MG/DAY
     Route: 048
     Dates: start: 201208
  2. PRAMIPEXOLE [Suspect]
     Active Substance: PRAMIPEXOLE
     Indication: PARKINSON^S DISEASE
     Dosage: IMMEDIATE RELEASE; 3 MG/DAY
     Route: 048
     Dates: start: 201208
  3. LEVODOPA, CARBIDOPA [Concomitant]
     Active Substance: CARBIDOPA\LEVODOPA
     Indication: PARKINSON^S DISEASE
     Dosage: 600 MG/DAY
     Route: 048
     Dates: start: 201208

REACTIONS (1)
  - Parkinsonism hyperpyrexia syndrome [Recovered/Resolved]

NARRATIVE: CASE EVENT DATE: 201209
